FAERS Safety Report 4290429-7 (Version None)
Quarter: 2004Q1

REPORT INFORMATION
  Report Type: 
  Country: None (occurrence: None)
  Receive Date: 20040209
  Receipt Date: 20040123
  Transmission Date: 20041129
  Serious: Yes (Hospitalization)
  Sender: FDA-Public Use
  Company Number: DSA_23808_2004

PATIENT
  Age: 37 Year
  Sex: Female

DRUGS (2)
  1. TAVOR [Suspect]
     Dosage: 60 MG ONCE PO
     Route: 048
     Dates: start: 20040104, end: 20040104
  2. ALCOHOL [Suspect]
     Dosage: 500 ML ONCE PO
     Route: 048
     Dates: start: 20040104, end: 20040104

REACTIONS (12)
  - ANAEMIA [None]
  - APNOEA [None]
  - BLOOD ALCOHOL INCREASED [None]
  - BLOOD POTASSIUM DECREASED [None]
  - BLOOD SODIUM INCREASED [None]
  - GAMMA-GLUTAMYLTRANSFERASE INCREASED [None]
  - HEPATIC ENZYME INCREASED [None]
  - INTENTIONAL OVERDOSE [None]
  - MIOSIS [None]
  - MYDRIASIS [None]
  - SOMNOLENCE [None]
  - TACHYCARDIA [None]
